FAERS Safety Report 8950835 (Version 1)
Quarter: 2012Q4

REPORT INFORMATION
  Report Type: Spontaneous
  Country: US (occurrence: None)
  Receive Date: 20121204
  Receipt Date: 20121204
  Transmission Date: 20130627
  Serious: Yes (Hospitalization)
  Sender: FDA-Public Use
  Company Number: None

PATIENT
  Age: 87 Year
  Sex: Female
  Weight: 65.77 kg

DRUGS (3)
  1. PRADAZAQ [Suspect]
     Indication: AFIB
     Route: 048
  2. OMEPRAZOLE [Concomitant]
  3. FERROUS SULFATE [Concomitant]

REACTIONS (2)
  - Faeces discoloured [None]
  - Abdominal discomfort [None]
